FAERS Safety Report 18737550 (Version 2)
Quarter: 2021Q1

REPORT INFORMATION
  Report Type: Report from Study
  Country: None (occurrence: CA)
  Receive Date: 20210113
  Receipt Date: 20210202
  Transmission Date: 20210419
  Serious: Yes (Hospitalization)
  Sender: FDA-Public Use
  Company Number: CA-ABBVIE-21P-028-3727458-00

PATIENT
  Age: 63 Year
  Sex: Female
  Weight: 78.2 kg

DRUGS (8)
  1. VENETOCLAX. [Suspect]
     Active Substance: VENETOCLAX
     Indication: MYELODYSPLASTIC SYNDROME
     Route: 048
     Dates: start: 20201222, end: 20210108
  2. LEVOFLOXACIN. [Concomitant]
     Active Substance: LEVOFLOXACIN
     Indication: PRODUCT USED FOR UNKNOWN INDICATION
     Route: 048
     Dates: start: 20210107, end: 20210108
  3. VENETOCLAX. [Suspect]
     Active Substance: VENETOCLAX
     Route: 048
     Dates: start: 20210112
  4. AMPHOTERICIN B LIPOSOMAL [Concomitant]
     Active Substance: AMPHOTERICIN B
     Indication: PRODUCT USED FOR UNKNOWN INDICATION
     Dates: start: 20201209, end: 20210107
  5. AMOXICILLIN/CLAVULANIC ACID [Concomitant]
     Active Substance: AMOXICILLIN\CLAVULANIC ACID
     Indication: PRODUCT USED FOR UNKNOWN INDICATION
     Dates: start: 20201123, end: 20210108
  6. VENETOCLAX. [Suspect]
     Active Substance: VENETOCLAX
     Route: 048
     Dates: start: 20210109, end: 20210111
  7. AMPHOTERICIN B LIPOSOMAL [Concomitant]
     Active Substance: AMPHOTERICIN B
     Dates: start: 20210108, end: 20210118
  8. ENASIDENIB [Concomitant]
     Active Substance: ENASIDENIB
     Indication: MYELODYSPLASTIC SYNDROME
     Route: 048
     Dates: start: 20201222

REACTIONS (1)
  - Periorbital infection [Recovering/Resolving]

NARRATIVE: CASE EVENT DATE: 20210108
